FAERS Safety Report 7455027-2 (Version None)
Quarter: 2011Q2

REPORT INFORMATION
  Report Type: 
  Country: None (occurrence: None)
  Receive Date: 20110503
  Receipt Date: 20110425
  Transmission Date: 20111010
  Serious: Yes (Other)
  Sender: FDA-Public Use
  Company Number: US-AMGEN-USASP2011021552

PATIENT
  Age: 58 Year

DRUGS (1)
  1. EPOGEN [Suspect]
     Indication: RENAL FAILURE CHRONIC
     Dosage: 30000 IU, 3 TIMES/WK
     Dates: start: 20070101, end: 20110401

REACTIONS (1)
  - HAEMOGLOBIN DECREASED [None]
